FAERS Safety Report 10078528 (Version 1)
Quarter: 2014Q2

REPORT INFORMATION
  Report Type: Spontaneous
  Country: JP (occurrence: JP)
  Receive Date: 20140415
  Receipt Date: 20140415
  Transmission Date: 20141212
  Serious: Yes (Hospitalization, Disabling)
  Sender: FDA-Public Use
  Company Number: JP-ROCHE-1383510

PATIENT
  Age: 17 Year
  Sex: Female
  Weight: 48.03 kg

DRUGS (9)
  1. XOLAIR [Suspect]
     Indication: ASTHMA
     Route: 058
     Dates: start: 20140127, end: 20140127
  2. SYMBICORT [Concomitant]
     Route: 065
     Dates: start: 20131226
  3. THEOPHYLLINE [Concomitant]
  4. SOLU-MEDROL [Concomitant]
     Route: 065
     Dates: start: 20140121
  5. SOLU-MEDROL [Concomitant]
     Route: 065
     Dates: end: 20140127
  6. DECADRON [Concomitant]
     Route: 065
     Dates: start: 20140126, end: 20140126
  7. THEODUR [Concomitant]
     Route: 065
     Dates: start: 20131226
  8. ALLEGRA [Concomitant]
     Route: 065
     Dates: start: 20140121
  9. FLORID [Concomitant]
     Route: 065
     Dates: start: 20140123, end: 20140131

REACTIONS (6)
  - Hemiplegia [Not Recovered/Not Resolved]
  - Ataxia [Not Recovered/Not Resolved]
  - Arthralgia [Recovering/Resolving]
  - Oedema [Recovering/Resolving]
  - Musculoskeletal pain [Recovering/Resolving]
  - Blood triglycerides decreased [Unknown]
